FAERS Safety Report 8614268-9 (Version None)
Quarter: 2012Q3

REPORT INFORMATION
  Report Type: 
  Country: None (occurrence: None)
  Receive Date: 20120823
  Receipt Date: 20120404
  Transmission Date: 20120928
  Serious: Yes (Other)
  Sender: FDA-Public Use
  Company Number: GB-SANOFI-AVENTIS-2012SA023855

PATIENT
  Age: 53 Year
  Sex: Female

DRUGS (2)
  1. SANDO K [Concomitant]
  2. INDAPAMIDE [Suspect]
     Indication: HYPERTENSION
     Route: 048
     Dates: start: 20120314, end: 20120403

REACTIONS (4)
  - DRY EYE [None]
  - DRY MOUTH [None]
  - EYE DISORDER [None]
  - OROPHARYNGEAL BLISTERING [None]
